FAERS Safety Report 18097689 (Version 2)
Quarter: 2021Q1

REPORT INFORMATION
  Report Type: Spontaneous
  Country: US (occurrence: US)
  Receive Date: 20200731
  Receipt Date: 20210203
  Transmission Date: 20210419
  Serious: Yes (Hospitalization, Other)
  Sender: FDA-Public Use
  Company Number: US-GLAXOSMITHKLINE-US2020AMR146145

PATIENT
  Sex: Female

DRUGS (2)
  1. REQUIP [Suspect]
     Active Substance: ROPINIROLE HYDROCHLORIDE
     Indication: RESTLESS LEGS SYNDROME
     Dosage: UNK
     Dates: end: 201905
  2. ROPINIROLE. [Suspect]
     Active Substance: ROPINIROLE
     Indication: RESTLESS LEGS SYNDROME
     Dosage: UNK

REACTIONS (12)
  - Ill-defined disorder [Unknown]
  - Loss of personal independence in daily activities [Unknown]
  - Suicide attempt [Unknown]
  - Oedema peripheral [Unknown]
  - Obsessive-compulsive disorder [Unknown]
  - Road traffic accident [Unknown]
  - Gambling disorder [Unknown]
  - Behaviour disorder [Unknown]
  - Alcohol abuse [Unknown]
  - Somnolence [Unknown]
  - Pain [Unknown]
  - Overdose [Unknown]
